FAERS Safety Report 25754537 (Version 1)
Quarter: 2025Q3

REPORT INFORMATION
  Report Type: Spontaneous
  Country: US (occurrence: US)
  Receive Date: 20250903
  Receipt Date: 20250903
  Transmission Date: 20251020
  Serious: Yes (Hospitalization, Other)
  Sender: LEADING PHARMA
  Company Number: US-LEADINGPHARMA-US-2025LEALIT00164

PATIENT
  Age: 45 Year
  Sex: Female

DRUGS (14)
  1. HYDROXYUREA [Suspect]
     Active Substance: HYDROXYUREA
     Indication: Chronic myeloid leukaemia
     Route: 065
     Dates: start: 20230720
  2. ASCIMINIB [Suspect]
     Active Substance: ASCIMINIB
     Indication: Chronic myeloid leukaemia
     Route: 065
  3. ASCIMINIB [Suspect]
     Active Substance: ASCIMINIB
     Route: 065
  4. PREDNISONE [Concomitant]
     Active Substance: PREDNISONE
     Indication: Lichen planus
     Route: 065
  5. PREDNISONE [Concomitant]
     Active Substance: PREDNISONE
     Route: 048
  6. PREDNISONE [Concomitant]
     Active Substance: PREDNISONE
     Route: 065
     Dates: start: 20230728
  7. PREDNISONE [Concomitant]
     Active Substance: PREDNISONE
     Route: 065
  8. TRIAMCINOLONE [Concomitant]
     Active Substance: TRIAMCINOLONE
     Route: 061
  9. THYMOCYTE IMMUNE GLOBULIN NOS [Concomitant]
     Active Substance: THYMOCYTE IMMUNE GLOBULIN NOS
     Route: 065
  10. FLUDARABINE [Concomitant]
     Active Substance: FLUDARABINE PHOSPHATE
     Route: 065
  11. THIOTEPA [Concomitant]
     Active Substance: THIOTEPA
     Route: 065
  12. MINOCYCLINE [Concomitant]
     Active Substance: MINOCYCLINE HYDROCHLORIDE
     Indication: Lichen planus
     Route: 065
  13. DOXYCYCLINE [Concomitant]
     Active Substance: DOXYCYCLINE
     Indication: Lichen planus
     Route: 065
  14. METRONIDAZOLE [Concomitant]
     Active Substance: METRONIDAZOLE
     Indication: Lichen planus
     Route: 065

REACTIONS (3)
  - Acute graft versus host disease in skin [Recovered/Resolved]
  - Skin toxicity [Recovered/Resolved]
  - Photosensitivity reaction [Recovered/Resolved]

NARRATIVE: CASE EVENT DATE: 20230101
